FAERS Safety Report 19286246 (Version 1)
Quarter: 2021Q2

REPORT INFORMATION
  Report Type: Spontaneous
  Country: US (occurrence: US)
  Receive Date: 20210521
  Receipt Date: 20210521
  Transmission Date: 20210717
  Serious: Yes (Other)
  Sender: FDA-Public Use
  Company Number: US-TORRENT-00011099

PATIENT
  Age: 69 Year
  Sex: Female

DRUGS (2)
  1. FLECAINIDE [Interacting]
     Active Substance: FLECAINIDE
     Indication: ATRIAL FIBRILLATION
     Dosage: FOR 6 YEARS
  2. FLUOXETINE [Suspect]
     Active Substance: FLUOXETINE HYDROCHLORIDE
     Indication: DEPRESSION
     Dosage: UNKNOWN

REACTIONS (4)
  - Bundle branch block right [Unknown]
  - Drug interaction [Unknown]
  - Atrial fibrillation [Unknown]
  - Toxicity to various agents [Not Recovered/Not Resolved]
